FAERS Safety Report 10005305 (Version 1)
Quarter: 2014Q1

REPORT INFORMATION
  Report Type: Spontaneous
  Country: US (occurrence: US)
  Receive Date: 20140312
  Receipt Date: 20140312
  Transmission Date: 20141002
  Serious: No
  Sender: FDA-Public Use
  Company Number: US-B.I. PHARMACEUTICALS,INC./RIDGEFIELD-2014-BI-09038BP

PATIENT
  Age: 84 Year
  Sex: Female
  Weight: 43 kg

DRUGS (1)
  1. DULCOGAS WILD BERRY [Suspect]
     Indication: FLATULENCE
     Dosage: 250 MG
     Route: 048
     Dates: start: 20140226

REACTIONS (2)
  - Device colour issue [Recovered/Resolved]
  - Product quality issue [Recovered/Resolved]
